FAERS Safety Report 18870730 (Version 1)
Quarter: 2021Q1

REPORT INFORMATION
  Report Type: Other
  Country: FR (occurrence: FR)
  Receive Date: 20210210
  Receipt Date: 20210210
  Transmission Date: 20210420
  Serious: Yes (Hospitalization)
  Sender: FDA-Public Use
  Company Number: FR-CADILA HEALTHCARE LIMITED-FR-ZYDUS-061784

PATIENT

DRUGS (4)
  1. IZALGI [Suspect]
     Active Substance: ACETAMINOPHEN\OPIUM
     Indication: PAIN
     Dosage: 6 DOSAGE FORM, QD
     Route: 048
     Dates: start: 20200530, end: 20200607
  2. PARACETAMOL [Suspect]
     Active Substance: ACETAMINOPHEN
     Indication: PAIN
     Dosage: 2 GRAM, QD
     Route: 048
     Dates: end: 20200607
  3. TRAMADOL. [Suspect]
     Active Substance: TRAMADOL
     Indication: PAIN
     Dosage: 200 MILLIGRAM, QD
     Route: 048
     Dates: end: 20200607
  4. MIANSERINE [MIANSERIN] [Suspect]
     Active Substance: MIANSERIN HYDROCHLORIDE
     Indication: DEPRESSION
     Dosage: 90 MILLIGRAM, QD
     Route: 048

REACTIONS (4)
  - Vomiting [Recovered/Resolved]
  - Hepatocellular injury [Recovered/Resolved]
  - Somnolence [Recovered/Resolved]
  - Lung disorder [Recovered/Resolved]

NARRATIVE: CASE EVENT DATE: 20200605
